FAERS Safety Report 4415850-5 (Version None)
Quarter: 2004Q3

REPORT INFORMATION
  Report Type: 
  Country: None (occurrence: None)
  Receive Date: 20040730
  Receipt Date: 20040716
  Transmission Date: 20050211
  Serious: Yes (Hospitalization)
  Sender: FDA-Public Use
  Company Number: DE-2004-027128

PATIENT
  Age: 36 Year
  Sex: Female
  Weight: 70 kg

DRUGS (4)
  1. BETAFERON (INTERFERON BETA - 1B) INJECTION, 250UG [Suspect]
     Indication: MULTIPLE SCLEROSIS
     Dosage: 9.6 MIU, EVERY 2D, SUBCUTANEOUS
     Route: 058
     Dates: start: 20020501, end: 20040613
  2. URBASON (METHYLPREDNISOLONE) [Suspect]
     Dosage: SEE IMAGE
     Route: 042
     Dates: start: 20040609, end: 20040611
  3. URBASON (METHYLPREDNISOLONE) [Suspect]
     Dosage: SEE IMAGE
     Route: 042
     Dates: start: 20040612
  4. TRINOVUM [Concomitant]

REACTIONS (5)
  - CEREBRAL VENOUS THROMBOSIS [None]
  - HEADACHE [None]
  - PHLEBOTHROMBOSIS [None]
  - SUPERIOR SAGITTAL SINUS THROMBOSIS [None]
  - TRANSVERSE SINUS THROMBOSIS [None]
